FAERS Safety Report 14873912 (Version 1)
Quarter: 2018Q2

REPORT INFORMATION
  Report Type: Spontaneous
  Country: US (occurrence: US)
  Receive Date: 20180424
  Receipt Date: 20180424
  Transmission Date: 20180711
  Serious: Yes (Other)
  Sender: FDA-Public Use
  Company Number: None

PATIENT
  Age: 36 Year
  Sex: Female

DRUGS (1)
  1. GILENYA [Suspect]
     Active Substance: FINGOLIMOD HYDROCHLORIDE
     Indication: MULTIPLE SCLEROSIS
     Dosage: ONE CAPSULE DAILY BY MOUTH
     Route: 048
     Dates: start: 20180111

REACTIONS (2)
  - Pyrexia [None]
  - Oropharyngeal pain [None]

NARRATIVE: CASE EVENT DATE: 20180418
